FAERS Safety Report 24052295 (Version 2)
Quarter: 2024Q3

REPORT INFORMATION
  Report Type: Report from Study
  Country: US (occurrence: US)
  Receive Date: 20240704
  Receipt Date: 20240725
  Transmission Date: 20241017
  Serious: Yes (Hospitalization, Other)
  Sender: JOHNSON AND JOHNSON
  Company Number: US-JNJFOC-20240675440

PATIENT
  Age: 59 Year
  Sex: Female
  Weight: 44.492 kg

DRUGS (2)
  1. SPRAVATO [Suspect]
     Active Substance: ESKETAMINE
     Indication: Depression
     Dosage: 56 MG, TOTAL OF 5 DOSES
     Dates: start: 20230116, end: 20230216
  2. SPRAVATO [Suspect]
     Active Substance: ESKETAMINE
     Dosage: 84 MG, TOTAL OF 26 DOSES
     Dates: start: 20230224, end: 20231227

REACTIONS (1)
  - Pelvic fracture [Recovering/Resolving]
